FAERS Safety Report 6729951-X (Version None)
Quarter: 2010Q2

REPORT INFORMATION
  Report Type: 
  Country: None (occurrence: None)
  Receive Date: 20100513
  Receipt Date: 20100427
  Transmission Date: 20101027
  Serious: Yes (Other)
  Sender: FDA-Public Use
  Company Number: DSA_43077_2010

PATIENT
  Age: 65 Year
  Sex: Male

DRUGS (5)
  1. DILTIAZEM HCL [Suspect]
     Indication: DRUG USE FOR UNKNOWN INDICATION
     Dosage: (DF)
  2. LOSARTAN POTASSIUM [Suspect]
     Indication: DRUG USE FOR UNKNOWN INDICATION
     Dosage: (DF)
  3. ACETYLSALICYLATE LYSINE [Concomitant]
  4. MOLSIDOMINE [Concomitant]
  5. PRAVASTATIN SODIUM [Concomitant]

REACTIONS (1)
  - SPIDER NAEVUS [None]
